FAERS Safety Report 24331125 (Version 1)
Quarter: 2024Q3

REPORT INFORMATION
  Report Type: Spontaneous
  Country: US (occurrence: US)
  Receive Date: 20240918
  Receipt Date: 20240918
  Transmission Date: 20241016
  Serious: No
  Sender: SANOFI AVENTIS
  Company Number: US-SA-2024SA266965

PATIENT
  Age: 17 Year
  Sex: Female

DRUGS (1)
  1. XENPOZYME [Suspect]
     Active Substance: OLIPUDASE ALFA-RPCP
     Indication: Niemann-Pick disease
     Dosage: 180 MG, QOW
     Route: 042
     Dates: start: 202212

REACTIONS (1)
  - Weight increased [Unknown]

NARRATIVE: CASE EVENT DATE: 20240701
